FAERS Safety Report 8620695 (Version 3)
Quarter: 2013Q4

REPORT INFORMATION
  Report Type: Spontaneous
  Country: CA (occurrence: CA)
  Receive Date: 20120618
  Receipt Date: 20131031
  Transmission Date: 20140711
  Serious: Yes (Other)
  Sender: FDA-Public Use
  Company Number: CA-MERCK-1206USA01562

PATIENT
  Age: 54 Year
  Sex: Female
  Weight: 68.49 kg

DRUGS (1)
  1. FOSAMAX [Suspect]
     Indication: OSTEOPOROSIS
     Dosage: UNK UNK, QW
     Route: 048
     Dates: start: 19971001, end: 20111115

REACTIONS (4)
  - Femur fracture [Unknown]
  - Fall [Unknown]
  - Renal disorder [Unknown]
  - Stress fracture [Unknown]
